FAERS Safety Report 19843992 (Version 3)
Quarter: 2021Q3

REPORT INFORMATION
  Report Type: Report from Study
  Country: DE (occurrence: DE)
  Receive Date: 20210917
  Receipt Date: 20210924
  Transmission Date: 20211014
  Serious: Yes (Hospitalization)
  Sender: FDA-Public Use
  Company Number: DE-SA-2021SA303906

PATIENT
  Age: 43 Year
  Sex: Female

DRUGS (9)
  1. CAPROS AKUT [Concomitant]
     Indication: PROPHYLAXIS
     Dosage: 5 MG
     Route: 048
  2. OLANZAPINE. [Concomitant]
     Active Substance: OLANZAPINE
     Indication: PRE-EXISTING DISEASE
     Dosage: 2.5 MG, QD
     Route: 048
  3. CELECOXIB. [Concomitant]
     Active Substance: CELECOXIB
     Indication: PROPHYLAXIS
     Dosage: 90 MG, QD
     Route: 048
  4. MOVICOL [Concomitant]
     Active Substance: POLYETHYLENE GLYCOL 3350\POTASSIUM CHLORIDE\SODIUM BICARBONATE\SODIUM CHLORIDE
     Indication: PROPHYLAXIS
     Dosage: UNK UNK, QD
     Route: 048
  5. PREGABALIN. [Concomitant]
     Active Substance: PREGABALIN
     Indication: PROPHYLAXIS
     Dosage: 25 MG, BID
     Route: 048
  6. FENTANYL. [Concomitant]
     Active Substance: FENTANYL
     Indication: PROPHYLAXIS
     Dosage: UNK, Q3D (PATCH)
     Route: 050
  7. LAXOBERAL [Concomitant]
     Active Substance: SODIUM PICOSULFATE
     Indication: PROPHYLAXIS
     Dosage: 10 DROP (INTERMITTENT)
     Route: 048
  8. PLERIXAFOR [Suspect]
     Active Substance: PLERIXAFOR
     Indication: PLASMA CELL MYELOMA
     Dosage: UNK
     Route: 058
     Dates: start: 20201117, end: 20201117
  9. PANTOZOL [Concomitant]
     Active Substance: PANTOPRAZOLE SODIUM
     Indication: PROPHYLAXIS
     Dosage: 49 MG, QD
     Route: 048

REACTIONS (2)
  - Pyrexia [Recovered/Resolved]
  - Escherichia test positive [Recovered/Resolved]

NARRATIVE: CASE EVENT DATE: 20201221
